FAERS Safety Report 6457819-5 (Version None)
Quarter: 2009Q4

REPORT INFORMATION
  Report Type: 
  Country: None (occurrence: None)
  Receive Date: 20091120
  Receipt Date: 20091106
  Transmission Date: 20100525
  Serious: Yes (Hospitalization)
  Sender: FDA-Public Use
  Company Number: 8051862

PATIENT
  Age: 35 Year
  Sex: Female
  Weight: 80.8 kg

DRUGS (6)
  1. CERTOLIZUMAB PEGOL [Suspect]
     Indication: CROHN'S DISEASE
     Dosage: SC
     Route: 058
  2. PREDNISOLONE [Concomitant]
  3. ENTOCORT EC [Concomitant]
  4. LOSEC [Concomitant]
  5. SPASMONAL [Concomitant]
  6. SOLPADOL [Concomitant]

REACTIONS (2)
  - ABDOMINAL ABSCESS [None]
  - ABDOMINAL PAIN [None]
